FAERS Safety Report 8204885-2 (Version None)
Quarter: 2012Q1

REPORT INFORMATION
  Report Type: 
  Country: None (occurrence: None)
  Receive Date: 20120313
  Receipt Date: 20120229
  Transmission Date: 20120608
  Serious: Yes (Hospitalization)
  Sender: FDA-Public Use
  Company Number: US-ELI_LILLY_AND_COMPANY-US201203000610

PATIENT
  Sex: Female

DRUGS (11)
  1. METOPROLOL SUCCINATE [Concomitant]
  2. ALPRAZOLAM [Concomitant]
  3. GABAPENTIN [Concomitant]
  4. IRON [Concomitant]
  5. OXYCODONE HCL [Concomitant]
     Dosage: UNK
  6. CELEXA [Concomitant]
  7. FOLIC ACID [Concomitant]
     Dosage: 1 MG, QD
  8. FORTEO [Suspect]
     Indication: OSTEOPOROSIS
     Dosage: 20 UG, QD
     Dates: start: 20110901
  9. METHOTREXATE [Concomitant]
  10. PREDNISONE [Concomitant]
  11. EFFEXOR [Concomitant]

REACTIONS (6)
  - DIARRHOEA [None]
  - RENAL DISORDER [None]
  - CLOSTRIDIAL INFECTION [None]
  - LIVER DISORDER [None]
  - BLOOD PRESSURE DECREASED [None]
  - DYSPHONIA [None]
